FAERS Safety Report 24816714 (Version 1)
Quarter: 2025Q1

REPORT INFORMATION
  Report Type: Spontaneous
  Country: CN (occurrence: CN)
  Receive Date: 20250107
  Receipt Date: 20250107
  Transmission Date: 20250409
  Serious: Yes (Hospitalization, Disabling)
  Sender: BEIGENE
  Company Number: CN-BEIGENE-BGN-2024-021242

PATIENT

DRUGS (9)
  1. TISLELIZUMAB [Suspect]
     Active Substance: TISLELIZUMAB
     Indication: Oesophageal carcinoma
     Route: 041
     Dates: start: 20241210
  2. CISPLATIN [Suspect]
     Active Substance: CISPLATIN
     Indication: Oesophageal carcinoma
     Route: 041
     Dates: start: 20241211, end: 20241213
  3. CISPLATIN [Suspect]
     Active Substance: CISPLATIN
     Route: 041
     Dates: start: 20241214
  4. PACLITAXEL [Suspect]
     Active Substance: PACLITAXEL
     Indication: Oesophageal carcinoma
     Route: 041
     Dates: start: 20241211
  5. SODIUM CHLORIDE [Concomitant]
     Active Substance: SODIUM CHLORIDE
     Indication: Vehicle solution use
     Route: 041
     Dates: start: 20241211, end: 20241211
  6. SODIUM CHLORIDE [Concomitant]
     Active Substance: SODIUM CHLORIDE
     Route: 041
     Dates: start: 20241211, end: 20241211
  7. SODIUM CHLORIDE [Concomitant]
     Active Substance: SODIUM CHLORIDE
     Route: 041
     Dates: start: 20241210, end: 20241210
  8. SODIUM CHLORIDE [Concomitant]
     Active Substance: SODIUM CHLORIDE
     Route: 041
     Dates: start: 20241211, end: 20241213
  9. SODIUM CHLORIDE [Concomitant]
     Active Substance: SODIUM CHLORIDE
     Route: 041
     Dates: start: 20241214, end: 20241214

REACTIONS (1)
  - Myelosuppression [Recovering/Resolving]

NARRATIVE: CASE EVENT DATE: 20241215
